FAERS Safety Report 14018313 (Version 1)
Quarter: 2017Q3

REPORT INFORMATION
  Report Type: Spontaneous
  Country: US (occurrence: US)
  Receive Date: 20170927
  Receipt Date: 20170927
  Transmission Date: 20171128
  Serious: Yes (Hospitalization)
  Sender: FDA-Public Use
  Company Number: None

PATIENT
  Age: 63 Year
  Sex: Male
  Weight: 65.3 kg

DRUGS (18)
  1. ATORVASTATIN [Concomitant]
     Active Substance: ATORVASTATIN
  2. BENADRYL [Concomitant]
     Active Substance: DIPHENHYDRAMINE HYDROCHLORIDE
  3. CIPROFLOXACIN. [Concomitant]
     Active Substance: CIPROFLOXACIN
  4. NORCO [Concomitant]
     Active Substance: ACETAMINOPHEN\HYDROCODONE BITARTRATE
  5. FENTANYL. [Concomitant]
     Active Substance: FENTANYL
  6. TRAZODONE [Concomitant]
     Active Substance: TRAZODONE HYDROCHLORIDE
  7. INSULIN LISPRO [Concomitant]
     Active Substance: INSULIN LISPRO
  8. ATENOLOL. [Concomitant]
     Active Substance: ATENOLOL
  9. AZITHROMYCIN ANHYDROUS. [Concomitant]
     Active Substance: AZITHROMYCIN ANHYDROUS
  10. CEFAZOLIN [Concomitant]
     Active Substance: CEFAZOLIN
  11. METFORMIN [Concomitant]
     Active Substance: METFORMIN HYDROCHLORIDE
  12. BACTRIM DS [Concomitant]
     Active Substance: SULFAMETHOXAZOLE\TRIMETHOPRIM
  13. MIDAZOLAM [Concomitant]
     Active Substance: MIDAZOLAM HYDROCHLORIDE
  14. VANCOMYCIN [Concomitant]
     Active Substance: VANCOMYCIN
  15. NORMAL SALINE [Concomitant]
     Active Substance: SODIUM CHLORIDE
  16. ASPIRIN. [Concomitant]
     Active Substance: ASPIRIN
  17. ISOPROTERENOL [Concomitant]
     Active Substance: ISOPROTERENOL
  18. INVOKANA [Suspect]
     Active Substance: CANAGLIFLOZIN
     Indication: TYPE 2 DIABETES MELLITUS
     Route: 048

REACTIONS (2)
  - Bradycardia [None]
  - Diabetic ketoacidosis [None]

NARRATIVE: CASE EVENT DATE: 20170926
